FAERS Safety Report 25306924 (Version 1)
Quarter: 2025Q2

REPORT INFORMATION
  Report Type: Spontaneous
  Country: US (occurrence: US)
  Receive Date: 20250513
  Receipt Date: 20250513
  Transmission Date: 20250717
  Serious: No
  Sender: DR REDDYS
  Company Number: US-DRL-USA-USA/2025/05/006890

PATIENT

DRUGS (2)
  1. IMATINIB [Suspect]
     Active Substance: IMATINIB
     Indication: C-kit gene mutation
  2. IMATINIB [Suspect]
     Active Substance: IMATINIB
     Indication: Malignant melanoma

REACTIONS (1)
  - Off label use [Unknown]
